FAERS Safety Report 16408164 (Version 1)
Quarter: 2019Q2

REPORT INFORMATION
  Report Type: Spontaneous
  Country: SI (occurrence: SI)
  Receive Date: 20190610
  Receipt Date: 20190610
  Transmission Date: 20190711
  Serious: Yes (Disabling, Other)
  Sender: FDA-Public Use
  Company Number: SI-AMGEN-SVNSP2019088565

PATIENT
  Age: 42 Year
  Sex: Female

DRUGS (5)
  1. PALEXIA [Concomitant]
     Active Substance: TAPENTADOL HYDROCHLORIDE
     Dosage: 50 MILLIGRAM
  2. TRAMAL [Concomitant]
     Active Substance: TRAMADOL
     Route: 065
  3. XGEVA [Suspect]
     Active Substance: DENOSUMAB
     Dosage: 120 MILLIGRAM
     Route: 058
     Dates: end: 20190228
  4. XGEVA [Suspect]
     Active Substance: DENOSUMAB
     Indication: CERVIX CANCER METASTATIC
     Dosage: 120 MG SOLUTION FOR INJECTION OR INFUSION
     Route: 058
     Dates: start: 20190104
  5. BEVACIZUMAB. [Concomitant]
     Active Substance: BEVACIZUMAB

REACTIONS (2)
  - Myalgia [Not Recovered/Not Resolved]
  - Bone pain [Not Recovered/Not Resolved]

NARRATIVE: CASE EVENT DATE: 20190104
